FAERS Safety Report 6369399-3 (Version None)
Quarter: 2009Q3

REPORT INFORMATION
  Report Type: 
  Country: None (occurrence: None)
  Receive Date: 20090917
  Receipt Date: 20090910
  Transmission Date: 20100115
  Serious: Yes (Hospitalization)
  Sender: FDA-Public Use
  Company Number: 2009AL000590

PATIENT
  Age: 49 Year
  Sex: Female

DRUGS (67)
  1. DIGOXIN [Suspect]
     Dosage: 0.25MG, DAILY, PO
     Route: 048
  2. XANAX [Concomitant]
  3. LEXAPRO [Concomitant]
  4. LANTUS [Concomitant]
  5. TYLENOL (CAPLET) [Concomitant]
  6. ALDACTONE [Concomitant]
  7. LAC-HYDRIN [Concomitant]
  8. BAZA [Concomitant]
  9. LASIX [Concomitant]
  10. LEVAQUIN [Concomitant]
  11. BENAZEPRIL HYDROCHLORIDE [Concomitant]
  12. PEPCID [Concomitant]
  13. LOTENSIN [Concomitant]
  14. CARDIZEM [Concomitant]
  15. AMARYL [Concomitant]
  16. CLARITIN [Concomitant]
  17. METOPROLOL SUCCINATE [Concomitant]
  18. TORSEMIDE [Concomitant]
  19. COUMADIN [Concomitant]
  20. SULAR [Concomitant]
  21. TRIAMTERENE AND HYDROCHLOROTHIAZIDE [Concomitant]
  22. DILTIA [Concomitant]
  23. FUROSEMIDE [Concomitant]
  24. K-DUR [Concomitant]
  25. MACROBID [Concomitant]
  26. UROBLUE [Concomitant]
  27. DEMADEX [Concomitant]
  28. RAGLAN [Concomitant]
  29. TAMBOCOR [Concomitant]
  30. TOPROL-XL [Concomitant]
  31. HEPARIN [Concomitant]
  32. MAXZIDE [Concomitant]
  33. TILACOR [Concomitant]
  34. TAMBOCOR [Concomitant]
  35. TAZTIA [Concomitant]
  36. KLOR-CON [Concomitant]
  37. MYLANTA [Concomitant]
  38. ANTACID TAB [Concomitant]
  39. ASPIRIN [Concomitant]
  40. BENADRYL [Concomitant]
  41. VICODIN [Concomitant]
  42. PHENERGAN [Concomitant]
  43. RESTORIL [Concomitant]
  44. SOLU-MEDROL [Concomitant]
  45. JANUVIA [Concomitant]
  46. NITROGLYCERIN [Concomitant]
  47. NOVOLOG [Concomitant]
  48. NEUTRA-PHOS [Concomitant]
  49. NOVOLOG MIX INSULIN [Concomitant]
  50. OXYGEN [Concomitant]
  51. WARFARIN [Concomitant]
  52. TIAZAC [Concomitant]
  53. CEFTIN [Concomitant]
  54. PROMETHAZINE [Concomitant]
  55. METHOCARBAM [Concomitant]
  56. OXYCOD/APAP [Concomitant]
  57. BYETTA [Concomitant]
  58. FAMOTIDINE [Concomitant]
  59. MEDROL [Concomitant]
  60. CIPROFLAXACIN [Concomitant]
  61. BENAZEPRIL HYDROCHLORIDE [Concomitant]
  62. ALPRAZOLAM [Concomitant]
  63. SPIRONOLACTONE [Concomitant]
  64. NITROFUR [Concomitant]
  65. MEDROXYOR AC [Concomitant]
  66. PHENAZOPYRIDINE HCL TAB [Concomitant]
  67. MEPERIDINE/PROMETH CAP [Concomitant]

REACTIONS (57)
  - ABDOMINAL PAIN UPPER [None]
  - ANHEDONIA [None]
  - ANXIETY [None]
  - ASTHENIA [None]
  - ATRIAL FIBRILLATION [None]
  - BACK PAIN [None]
  - BLOOD POTASSIUM DECREASED [None]
  - BRADYCARDIA [None]
  - BREATH SOUNDS ABNORMAL [None]
  - CARDIAC FAILURE CONGESTIVE [None]
  - CHEST DISCOMFORT [None]
  - CHEST PAIN [None]
  - CHRONIC OBSTRUCTIVE PULMONARY DISEASE [None]
  - COLD SWEAT [None]
  - CONDITION AGGRAVATED [None]
  - CRYING [None]
  - CYANOSIS [None]
  - DYSPEPSIA [None]
  - DYSPNOEA [None]
  - EAR CONGESTION [None]
  - EAR PAIN [None]
  - ECONOMIC PROBLEM [None]
  - EMOTIONAL DISTRESS [None]
  - ENDOMETRIAL NEOPLASM [None]
  - FATIGUE [None]
  - FLATULENCE [None]
  - FLUID OVERLOAD [None]
  - GASTROOESOPHAGEAL REFLUX DISEASE [None]
  - GENERALISED OEDEMA [None]
  - HEART RATE IRREGULAR [None]
  - HYPERHIDROSIS [None]
  - HYPOGLYCAEMIA [None]
  - INJURY [None]
  - INTERNATIONAL NORMALISED RATIO INCREASED [None]
  - IRRITABLE BOWEL SYNDROME [None]
  - MENTAL DISORDER [None]
  - OEDEMA [None]
  - OEDEMA GENITAL [None]
  - OEDEMA PERIPHERAL [None]
  - PAIN [None]
  - PALPITATIONS [None]
  - PANIC ATTACK [None]
  - PICKWICKIAN SYNDROME [None]
  - POSTMENOPAUSAL HAEMORRHAGE [None]
  - POSTNASAL DRIP [None]
  - PROTHROMBIN TIME PROLONGED [None]
  - RALES [None]
  - RESTLESSNESS [None]
  - SENSATION OF PRESSURE [None]
  - SINUSITIS [None]
  - SKIN ULCER [None]
  - SLEEP APNOEA SYNDROME [None]
  - SOCIAL PROBLEM [None]
  - STASIS DERMATITIS [None]
  - UTERINE LEIOMYOMA [None]
  - VENOUS INSUFFICIENCY [None]
  - VENTRICULAR FAILURE [None]
